FAERS Safety Report 6214833-2 (Version None)
Quarter: 2009Q2

REPORT INFORMATION
  Report Type: 
  Country: None (occurrence: None)
  Receive Date: 20090604
  Receipt Date: 20090521
  Transmission Date: 20091009
  Serious: Yes (Other)
  Sender: FDA-Public Use
  Company Number: US-PFIZER INC-2009217646

PATIENT
  Sex: Male

DRUGS (5)
  1. XANAX [Suspect]
     Indication: PANIC DISORDER
  2. PAXIL [Suspect]
     Indication: BIPOLAR DISORDER
  3. WELLBUTRIN [Suspect]
  4. SSRI [Suspect]
  5. MELLARIL [Suspect]

REACTIONS (7)
  - BLOOD TESTOSTERONE ABNORMAL [None]
  - DRUG INEFFECTIVE [None]
  - IRRITABILITY [None]
  - LIBIDO DISORDER [None]
  - PANIC ATTACK [None]
  - STRESS [None]
  - SUICIDAL BEHAVIOUR [None]
